FAERS Safety Report 7281987-9 (Version None)
Quarter: 2011Q1

REPORT INFORMATION
  Report Type: 
  Country: None (occurrence: None)
  Receive Date: 20110208
  Receipt Date: 20110202
  Transmission Date: 20110831
  Serious: Yes (Other)
  Sender: FDA-Public Use
  Company Number: GB-ABBOTT-11P-167-0702845-00

PATIENT
  Age: 25 Year
  Sex: Male

DRUGS (15)
  1. QUETIAPINE [Suspect]
     Route: 048
     Dates: start: 20101219, end: 20110105
  2. COD LIVER OIL [Concomitant]
     Indication: PRODUCT USED FOR UNKNOWN INDICATION
  3. RISPERIDONE [Concomitant]
     Indication: PRODUCT USED FOR UNKNOWN INDICATION
  4. CLOZAPINE [Concomitant]
     Indication: PRODUCT USED FOR UNKNOWN INDICATION
     Dates: end: 20101207
  5. QUETIAPINE [Suspect]
     Indication: MANIA
     Route: 048
     Dates: start: 20101216
  6. HYOSCINE HBR HYT [Concomitant]
     Indication: PRODUCT USED FOR UNKNOWN INDICATION
  7. MULTI-VITAMIN [Concomitant]
     Indication: PRODUCT USED FOR UNKNOWN INDICATION
  8. PARACETAMOL [Concomitant]
     Indication: PRODUCT USED FOR UNKNOWN INDICATION
  9. VALPROATE SODIUM [Suspect]
     Indication: SCHIZOPHRENIA
     Route: 048
     Dates: start: 20101221
  10. VALPROATE SODIUM [Suspect]
     Route: 048
     Dates: start: 20101224, end: 20110105
  11. DIAZEPAM [Concomitant]
     Indication: PRODUCT USED FOR UNKNOWN INDICATION
  12. HALOPERIDOL [Concomitant]
     Indication: PRODUCT USED FOR UNKNOWN INDICATION
  13. ZOPICLONE [Concomitant]
     Indication: PRODUCT USED FOR UNKNOWN INDICATION
  14. VALPROATE SODIUM [Suspect]
     Route: 048
     Dates: start: 20101223
  15. PROCYCLIDINE [Concomitant]
     Indication: PRODUCT USED FOR UNKNOWN INDICATION

REACTIONS (4)
  - NEUTROPENIA [None]
  - LYMPHOCYTE COUNT DECREASED [None]
  - PLATELET COUNT DECREASED [None]
  - WHITE BLOOD CELL COUNT DECREASED [None]
